FAERS Safety Report 5432127-X (Version None)
Quarter: 2007Q3

REPORT INFORMATION
  Report Type: 
  Country: None (occurrence: None)
  Receive Date: 20070830
  Receipt Date: 20070820
  Transmission Date: 20080115
  Serious: Yes (Hospitalization)
  Sender: FDA-Public Use
  Company Number: US-ABBOTT-07P-163-0378490-00

PATIENT
  Sex: Female

DRUGS (6)
  1. ADVICOR [Suspect]
     Indication: BLOOD TRIGLYCERIDES INCREASED
     Route: 048
     Dates: start: 20070501, end: 20070509
  2. LEVOTHYROXINE SODIUM [Concomitant]
     Indication: HYPOTHYROIDISM
     Dates: start: 19950101
  3. FLUOXETINE [Concomitant]
     Indication: DEPRESSION
     Dates: start: 20000101
  4. NIFEDIPINE [Concomitant]
     Indication: ARTERIOSPASM CORONARY
     Dates: start: 19950101
  5. LORA TAB [Concomitant]
     Indication: PAIN
     Dates: start: 19950101
  6. IBUPROFEN [Concomitant]
     Indication: ANTIINFLAMMATORY THERAPY
     Dates: start: 19950101

REACTIONS (3)
  - CHEST PAIN [None]
  - CHRONIC OBSTRUCTIVE PULMONARY DISEASE [None]
  - FLUSHING [None]
